FAERS Safety Report 8760295 (Version 1)
Quarter: 2012Q4

REPORT INFORMATION
  Report Type: Spontaneous
  Country: US (occurrence: None)
  Receive Date: 20120829
  Receipt Date: 20120829
  Transmission Date: 20130627
  Serious: No
  Sender: FDA-Public Use
  Company Number: None

PATIENT
  Age: 81 Year
  Sex: Female

DRUGS (1)
  1. CLOPIOGREL 75 MG SUN PHARMA [Suspect]
     Route: 048

REACTIONS (3)
  - Dizziness [None]
  - Product substitution issue [None]
  - Product quality issue [None]
